FAERS Safety Report 6763136-6 (Version None)
Quarter: 2010Q2

REPORT INFORMATION
  Report Type: 
  Country: None (occurrence: None)
  Receive Date: 20100608
  Receipt Date: 20100608
  Transmission Date: 20101027
  Serious: Yes (Life-Threatening, Hospitalization, Disabling)
  Sender: FDA-Public Use
  Company Number: None

PATIENT
  Age: 34 Year
  Sex: Female
  Weight: 68.2 kg

DRUGS (2)
  1. REMICADE [Suspect]
     Indication: CROHN'S DISEASE
     Dosage: 10 MG/KG EVERY 8 WEEKS 042
     Dates: start: 20060101, end: 20090701
  2. IMURAN [Suspect]
     Indication: CROHN'S DISEASE
     Dates: start: 20060101, end: 20090101

REACTIONS (1)
  - HEPATOSPLENIC T-CELL LYMPHOMA [None]
